FAERS Safety Report 24343613 (Version 2)
Quarter: 2024Q4

REPORT INFORMATION
  Report Type: Spontaneous
  Country: RO (occurrence: RO)
  Receive Date: 20240920
  Receipt Date: 20241105
  Transmission Date: 20250114
  Serious: Yes (Other)
  Sender: RANBAXY
  Company Number: RO-SUN PHARMACEUTICAL INDUSTRIES LTD-2024RR-439156

PATIENT
  Age: 73 Year
  Sex: Male

DRUGS (2)
  1. LENALIDOMIDE [Suspect]
     Active Substance: LENALIDOMIDE
     Indication: Osteolysis
     Dosage: UNK
     Route: 065
  2. BORTEZOMIB [Suspect]
     Active Substance: BORTEZOMIB
     Indication: Osteolysis
     Dosage: UNK
     Route: 065

REACTIONS (1)
  - Disease progression [Unknown]
